FAERS Safety Report 16869566 (Version 2)
Quarter: 2019Q4

REPORT INFORMATION
  Report Type: Spontaneous
  Country: US (occurrence: US)
  Receive Date: 20190930
  Receipt Date: 20191120
  Transmission Date: 20200122
  Serious: No
  Sender: FDA-Public Use
  Company Number: US-ASTRAZENECA-2019SF26590

PATIENT
  Age: 23566 Day
  Sex: Male
  Weight: 90.7 kg

DRUGS (21)
  1. BYDUREON [Suspect]
     Active Substance: EXENATIDE
     Indication: TYPE 2 DIABETES MELLITUS
     Dosage: BYDUREON SDT
     Route: 058
  2. EMPAGLIFLOZIN [Concomitant]
     Active Substance: EMPAGLIFLOZIN
  3. TAMSULOSIN [Concomitant]
     Active Substance: TAMSULOSIN
     Dosage: 4MG IN THE EVENING
  4. LISINOPRIL +HCTZ [Suspect]
     Active Substance: HYDROCHLOROTHIAZIDE\LISINOPRIL
     Dosage: 20/12.5 MG TWO TIMES A DAY
     Route: 048
  5. CITALOPRAM [Concomitant]
     Active Substance: CITALOPRAM HYDROBROMIDE
  6. IRON [Concomitant]
     Active Substance: IRON
     Dosage: 32.5 MG IN THE EVENING
  7. BYDUREON [Suspect]
     Active Substance: EXENATIDE
     Indication: TYPE 2 DIABETES MELLITUS
     Route: 058
     Dates: start: 20160410
  8. ASPIRIN. [Concomitant]
     Active Substance: ASPIRIN
  9. BYDUREON BCISE [Suspect]
     Active Substance: EXENATIDE
     Indication: TYPE 2 DIABETES MELLITUS
     Route: 058
  10. AMLODIPINE [Concomitant]
     Active Substance: AMLODIPINE BESYLATE
  11. FENOFIBRATE. [Concomitant]
     Active Substance: FENOFIBRATE
  12. OMEGA 3 OTC [Concomitant]
  13. FERROUS SULFATE. [Concomitant]
     Active Substance: FERROUS SULFATE
  14. D3 OTC [Concomitant]
     Dosage: 1000 IU IN THE EVENING
  15. MULTIVITAMINE OTC [Concomitant]
  16. METFORMIN [Concomitant]
     Active Substance: METFORMIN HYDROCHLORIDE
  17. ETHYL ESTER [Concomitant]
  18. MAGNESIUM OTC [Concomitant]
  19. LOVAZA OMEGA 3 ACID [Concomitant]
  20. SIMVASTATIN. [Concomitant]
     Active Substance: SIMVASTATIN
     Dosage: 40 MG IN THE EVENING
  21. TESTOSTERONE CYPIONATE. [Concomitant]
     Active Substance: TESTOSTERONE CYPIONATE
     Dosage: 200 MG/ML EVERY TWO WEEKS

REACTIONS (7)
  - Device malfunction [Recovered/Resolved]
  - Multiple use of single-use product [Recovered/Resolved]
  - Injection site mass [Recovered/Resolved]
  - Injection site haemorrhage [Recovered/Resolved]
  - Injection site swelling [Unknown]
  - Injection site mass [Not Recovered/Not Resolved]
  - Injection site discolouration [Recovered/Resolved]

NARRATIVE: CASE EVENT DATE: 20190901
